FAERS Safety Report 4751295-6 (Version None)
Quarter: 2005Q3

REPORT INFORMATION
  Report Type: 
  Country: None (occurrence: None)
  Receive Date: 20050822
  Receipt Date: 20050811
  Transmission Date: 20060218
  Serious: Yes (Life-Threatening)
  Sender: FDA-Public Use
  Company Number: MEDI-0003602

PATIENT
  Age: 63 Year
  Sex: Female
  Weight: 93 kg

DRUGS (7)
  1. ETHYOL [Suspect]
     Dosage: 400 MG, 1D, INTRAVENOUS
     Route: 042
     Dates: start: 20050524, end: 20050701
  2. ESIDRIX [Concomitant]
  3. TENORDATE (NIFEDIPINE, ATENOLOL) [Concomitant]
  4. ZOPHREN (ONDANSETRON HYDROCHLORIDE) [Concomitant]
  5. RADIATION THERAPY [Concomitant]
  6. METHYLPREDNISOLONE HEMISUCCINATE (METHYLPREDNISOLONE HEMISUCCINATE) [Concomitant]
  7. RADIOTHERAPY [Concomitant]

REACTIONS (4)
  - CONJUNCTIVITIS [None]
  - DERMATITIS BULLOUS [None]
  - PRURITUS [None]
  - RASH ERYTHEMATOUS [None]
